FAERS Safety Report 8011354-1 (Version None)
Quarter: 2011Q4

REPORT INFORMATION
  Report Type: 
  Country: None (occurrence: None)
  Receive Date: 20111228
  Receipt Date: 20111219
  Transmission Date: 20120403
  Serious: Yes (Congenital Anomaly, Other)
  Sender: FDA-Public Use
  Company Number: US-UCBSA-002642

PATIENT
  Age: 11 Day
  Sex: Female

DRUGS (1)
  1. KEPPRA [Suspect]
     Indication: EPILEPSY
     Route: 064
     Dates: start: 20081102

REACTIONS (7)
  - SPEECH DISORDER [None]
  - COGNITIVE DISORDER [None]
  - FOETAL EXPOSURE DURING PREGNANCY [None]
  - DERMOID CYST [None]
  - MUSCULAR WEAKNESS [None]
  - SOCIAL PROBLEM [None]
  - HAEMANGIOMA [None]
